FAERS Safety Report 11733081 (Version 1)
Quarter: 2015Q4

REPORT INFORMATION
  Report Type: Spontaneous
  Country: US (occurrence: US)
  Receive Date: 20151110
  Receipt Date: 20151110
  Transmission Date: 20160304
  Serious: No
  Sender: FDA-Public Use
  Company Number: US-ELI_LILLY_AND_COMPANY-US201205002166

PATIENT
  Age: 61 Year
  Sex: Female

DRUGS (2)
  1. ADVIL [Concomitant]
     Active Substance: IBUPROFEN
  2. FORTEO [Suspect]
     Active Substance: TERIPARATIDE
     Indication: OSTEOPOROSIS
     Dosage: 20 UG, QD
     Dates: start: 20120422

REACTIONS (4)
  - Dysgeusia [Unknown]
  - Hearing impaired [Unknown]
  - Gastrointestinal disorder [Recovering/Resolving]
  - Injection site erythema [Not Recovered/Not Resolved]

NARRATIVE: CASE EVENT DATE: 20120422
